FAERS Safety Report 7121371-1 (Version None)
Quarter: 2010Q4

REPORT INFORMATION
  Report Type: 
  Country: None (occurrence: None)
  Receive Date: 20101124
  Receipt Date: 20101115
  Transmission Date: 20110411
  Serious: Yes (Life-Threatening)
  Sender: FDA-Public Use
  Company Number: GB-ELI_LILLY_AND_COMPANY-GB201011003793

PATIENT
  Age: 64 Year
  Sex: Male
  Weight: 81 kg

DRUGS (8)
  1. ZYPREXA [Suspect]
     Dosage: 10 MG, UNK
     Route: 048
     Dates: start: 20090301, end: 20090519
  2. ZYPREXA [Suspect]
     Dosage: 5 MG, UNK
     Route: 048
     Dates: start: 20090519, end: 20100901
  3. DULOXETINE [Concomitant]
     Dosage: 60 MG, DAILY (1/D)
  4. DOCOSAHEXANOIC ACID [Concomitant]
     Dosage: 2 D/F (380MG STRENGH), 2/D
  5. DOCUSATE SODIUM [Concomitant]
     Indication: PAIN
     Dosage: 100 MG, 3/D
  6. EICOSAPENTAENOIC ACID [Concomitant]
     Dosage: 2 D/F (160MG STRENGH), 2/D
  7. VALSARTAN [Concomitant]
     Dosage: 120 MG, DAILY (1/D)
     Dates: end: 20091018
  8. WARFARIN SODIUM [Concomitant]

REACTIONS (1)
  - PULMONARY EMBOLISM [None]
